FAERS Safety Report 7497956-X (Version None)
Quarter: 2011Q2

REPORT INFORMATION
  Report Type: 
  Country: None (occurrence: None)
  Receive Date: 20110524
  Receipt Date: 20110511
  Transmission Date: 20111010
  Serious: No
  Sender: FDA-Public Use
  Company Number: US-BIOGENIDEC-2010BI012841

PATIENT
  Age: 43 Year
  Sex: Female

DRUGS (1)
  1. TYSABRI [Suspect]
     Indication: MULTIPLE SCLEROSIS
     Route: 042
     Dates: start: 20091216

REACTIONS (10)
  - BALANCE DISORDER [None]
  - PAIN IN EXTREMITY [None]
  - HYPOAESTHESIA [None]
  - GAIT DISTURBANCE [None]
  - MUSCULAR WEAKNESS [None]
  - ASTHENIA [None]
  - FATIGUE [None]
  - WEIGHT INCREASED [None]
  - COORDINATION ABNORMAL [None]
  - MEMORY IMPAIRMENT [None]
